FAERS Safety Report 5465560-0 (Version None)
Quarter: 2007Q3

REPORT INFORMATION
  Report Type: 
  Country: None (occurrence: None)
  Receive Date: 20070924
  Receipt Date: 19931026
  Transmission Date: 20080115
  Serious: Yes (Other)
  Sender: FDA-Public Use
  Company Number: FR-PFIZER INC-2006121949

PATIENT
  Sex: Female

DRUGS (8)
  1. IRINOTECAN HCL [Suspect]
     Indication: NON-HODGKIN'S LYMPHOMA
     Dosage: DAILY DOSE:580MG
     Route: 042
     Dates: start: 19930910, end: 19930910
  2. IRINOTECAN HCL [Suspect]
     Dosage: DAILY DOSE:575MG
     Route: 042
     Dates: start: 19931001, end: 19931001
  3. PREDNIMUSTINE [Concomitant]
     Dosage: FREQ:EVERY DAY
     Route: 048
     Dates: start: 19931105, end: 19931109
  4. AMIKACIN [Concomitant]
     Dosage: DAILY DOSE:1500MG-FREQ:EVERY DAY
     Route: 042
     Dates: start: 19931003, end: 19931105
  5. DIPHENOXYLATE [Concomitant]
     Dosage: FREQ:EVERY DAY
     Route: 048
  6. ETOPOSIDE [Concomitant]
     Dosage: FREQ:EVERY DAY
     Route: 042
     Dates: start: 19931105, end: 19931105
  7. LOPERAMIDE HCL [Concomitant]
     Dosage: FREQ:EVERY DAY
     Route: 048
  8. MITOGUAZONE [Concomitant]
     Dosage: FREQ:EVERY DAY
     Route: 042
     Dates: start: 19931105, end: 19931105

REACTIONS (3)
  - DEAFNESS [None]
  - FEBRILE NEUTROPENIA [None]
  - SEPSIS [None]
